FAERS Safety Report 11789723 (Version 1)
Quarter: 2015Q4

REPORT INFORMATION
  Report Type: Report from Study
  Country: AU (occurrence: AU)
  Receive Date: 20151201
  Receipt Date: 20151201
  Transmission Date: 20160305
  Serious: Yes (Other)
  Sender: FDA-Public Use
  Company Number: AU-MYLANLABS-2015M1042435

PATIENT

DRUGS (3)
  1. POMALIDOMIDE [Suspect]
     Active Substance: POMALIDOMIDE
     Indication: PLASMA CELL MYELOMA
     Dosage: ONCE DAILY ON DAY 1 THROUGH 21 (28-DAY CYCLE)
     Route: 065
  2. MARIZOMIB [Suspect]
     Active Substance: MARIZOMIB
     Indication: PLASMA CELL MYELOMA
     Dosage: OVER 120 MINUTES ON DAYS 1, 4, 8 AND 11 (28-DAY CYCLE)
     Route: 042
  3. DEXAMETHASONE. [Suspect]
     Active Substance: DEXAMETHASONE
     Indication: PLASMA CELL MYELOMA
     Dosage: 10MG ONCE DAILY ON DAYS 1, 2, 4, 5, 8, 9, 11, 12, 15, 16, 22 AND 23 (28-DAY CYCLE)
     Route: 065

REACTIONS (1)
  - Tumour lysis syndrome [Unknown]
